FAERS Safety Report 7114325-2 (Version None)
Quarter: 2010Q4

REPORT INFORMATION
  Report Type: 
  Country: None (occurrence: None)
  Receive Date: 20101119
  Receipt Date: 20101112
  Transmission Date: 20110411
  Serious: Yes (Hospitalization)
  Sender: FDA-Public Use
  Company Number: IT-ABBOTT-10P-083-0678629-00

PATIENT
  Sex: Female

DRUGS (3)
  1. HUMIRA [Suspect]
     Indication: ANKYLOSING SPONDYLITIS
     Dosage: CYCLIC - EOW
     Route: 058
     Dates: start: 20100301, end: 20100801
  2. HUMIRA [Suspect]
     Indication: LEUKOCYTE ANTIGEN B-27 POSITIVE
  3. NSAID'S [Concomitant]
     Indication: ANKYLOSING SPONDYLITIS
     Dosage: WHEN NEEDED

REACTIONS (3)
  - BLINDNESS UNILATERAL [None]
  - DEMYELINATION [None]
  - VISUAL ACUITY REDUCED [None]
